FAERS Safety Report 8406940-0 (Version None)
Quarter: 2012Q2

REPORT INFORMATION
  Report Type: 
  Country: None (occurrence: None)
  Receive Date: 20120604
  Receipt Date: 20120530
  Transmission Date: 20120825
  Serious: Yes (Life-Threatening, Hospitalization, Disabling, Other)
  Sender: FDA-Public Use
  Company Number: FR-ASTRAZENECA-2012SE35718

PATIENT
  Age: 18798 Day
  Sex: Male

DRUGS (3)
  1. AZD6140 [Suspect]
     Indication: ACUTE MYOCARDIAL INFARCTION
     Dosage: 180 MG LOADING DOSE, 90 MG TWICE DAILY DURING 30 DAYS
     Route: 048
     Dates: start: 20120528
  2. STUDY PROCEDURE [Suspect]
     Indication: ACUTE MYOCARDIAL INFARCTION
  3. ANTICOAGULATION [Suspect]

REACTIONS (1)
  - PERICARDIAL EFFUSION [None]
